FAERS Safety Report 14625288 (Version 1)
Quarter: 2018Q1

REPORT INFORMATION
  Report Type: Spontaneous
  Country: IT (occurrence: IT)
  Receive Date: 20180312
  Receipt Date: 20180312
  Transmission Date: 20180509
  Serious: Yes (Hospitalization)
  Sender: FDA-Public Use
  Company Number: IT-AUROBINDO-AUR-APL-2018-013319

PATIENT
  Age: 74 Year
  Sex: Female

DRUGS (8)
  1. ASCRIPTIN [Suspect]
     Active Substance: ASPIRIN
     Indication: PLATELET AGGREGATION INHIBITION
     Dosage: 300 MILLIGRAM
     Route: 048
     Dates: start: 20110101, end: 20180118
  2. LORAZEPAM. [Concomitant]
     Active Substance: LORAZEPAM
  3. LOBIDIUR [Concomitant]
     Active Substance: HYDROCHLOROTHIAZIDE\NEBIVOLOL HYDROCHLORIDE
  4. FULCRO [Concomitant]
     Active Substance: FENOFIBRATE
  5. DENIBAN [Concomitant]
     Active Substance: AMISULPRIDE
  6. PREGABALIN. [Concomitant]
     Active Substance: PREGABALIN
  7. SERTRALINE [Suspect]
     Active Substance: SERTRALINE HYDROCHLORIDE
     Indication: DEPRESSION
     Dosage: 100 MILLIGRAM
     Route: 048
  8. LAMICTAL [Concomitant]
     Active Substance: LAMOTRIGINE

REACTIONS (2)
  - Subdural haematoma [Recovering/Resolving]
  - Subarachnoid haemorrhage [Recovering/Resolving]

NARRATIVE: CASE EVENT DATE: 20180118
